FAERS Safety Report 5410639-2 (Version None)
Quarter: 2007Q3

REPORT INFORMATION
  Report Type: 
  Country: None (occurrence: None)
  Receive Date: 20070810
  Receipt Date: 20070430
  Transmission Date: 20080115
  Serious: No
  Sender: FDA-Public Use
  Company Number: A0649271A

PATIENT
  Age: 54 Year
  Sex: Female

DRUGS (10)
  1. PAXIL [Suspect]
     Indication: ANXIETY DISORDER
     Dosage: 37.5MG PER DAY
     Route: 048
  2. ACCUPRIL [Concomitant]
  3. AVANDIA [Concomitant]
  4. GLUCOTROL XL [Concomitant]
  5. LIPITOR [Concomitant]
  6. PREVACID [Concomitant]
  7. ZETIA [Concomitant]
  8. LAMICTAL [Concomitant]
  9. PREVENTAN [Concomitant]
  10. FLOVENT [Concomitant]

REACTIONS (2)
  - ANXIETY [None]
  - DRUG INEFFECTIVE [None]
